FAERS Safety Report 6983695-8 (Version None)
Quarter: 2010Q3

REPORT INFORMATION
  Report Type: 
  Country: None (occurrence: None)
  Receive Date: 20100914
  Receipt Date: 20020314
  Transmission Date: 20110219
  Serious: Yes (Other)
  Sender: FDA-Public Use
  Company Number: US-WYE-H07129108

PATIENT
  Age: 18 Year
  Sex: Female
  Weight: 52.21 kg

DRUGS (10)
  1. ADVIL LIQUI-GELS [Suspect]
     Indication: NASOPHARYNGITIS
     Dosage: UNKNOWN
     Route: 065
     Dates: start: 20051201, end: 20051201
  2. ADVIL LIQUI-GELS [Suspect]
     Indication: NASAL CONGESTION
  3. ACETAMINOPHEN [Suspect]
     Indication: NASOPHARYNGITIS
     Dosage: UNKNOWN
     Route: 065
     Dates: start: 20051201, end: 20051201
  4. ACETAMINOPHEN [Suspect]
     Indication: NASAL CONGESTION
  5. VICKS DAYQUIL SINUS PRESSURE + PAIN RELIEF W/ IBUPROFEN [Suspect]
     Indication: NASOPHARYNGITIS
     Dosage: UNKNOWN
     Route: 065
     Dates: start: 20051201, end: 20051201
  6. VICKS DAYQUIL SINUS PRESSURE + PAIN RELIEF W/ IBUPROFEN [Suspect]
     Indication: NASAL CONGESTION
  7. SUDAFED S.A. [Suspect]
     Indication: NASOPHARYNGITIS
     Dosage: 4 TO 5 TABLETS TWO TO THREE TIMES
     Route: 048
     Dates: start: 20051210, end: 20051213
  8. SUDAFED S.A. [Suspect]
     Indication: NASAL CONGESTION
  9. SUDAFED 12 HOUR [Suspect]
     Indication: NASOPHARYNGITIS
     Route: 048
     Dates: start: 20051210, end: 20051213
  10. SUDAFED 12 HOUR [Suspect]
     Indication: NASAL CONGESTION

REACTIONS (6)
  - CHEST PAIN [None]
  - DECREASED APPETITE [None]
  - DISORIENTATION [None]
  - DYSPNOEA [None]
  - NAUSEA [None]
  - SOMNOLENCE [None]
